FAERS Safety Report 9627146 (Version 2)
Quarter: 2013Q4

REPORT INFORMATION
  Report Type: Report from Study
  Country: US (occurrence: US)
  Receive Date: 20131016
  Receipt Date: 20131030
  Transmission Date: 20140711
  Serious: Yes (Other)
  Sender: FDA-Public Use
  Company Number: US-US-EMD SERONO, INC.-7243061

PATIENT
  Age: 50 Year
  Sex: Female
  Weight: 87 kg

DRUGS (4)
  1. REBIF [Suspect]
     Indication: PRODUCT USED FOR UNKNOWN INDICATION
     Route: 058
     Dates: start: 20130408
  2. REBIF [Suspect]
     Route: 058
  3. REBIF [Suspect]
  4. TYLENOL                            /00020001/ [Concomitant]
     Indication: PREMEDICATION

REACTIONS (2)
  - Diverticulitis [Recovered/Resolved]
  - Fatigue [Not Recovered/Not Resolved]
